FAERS Safety Report 24222993 (Version 1)
Quarter: 2024Q3

REPORT INFORMATION
  Report Type: Spontaneous
  Country: US (occurrence: US)
  Receive Date: 20240819
  Receipt Date: 20240819
  Transmission Date: 20241016
  Serious: No
  Sender: EMD SERONO INC
  Company Number: US-Merck Healthcare KGaA-2024043572

PATIENT
  Age: 41 Year
  Sex: Female

DRUGS (2)
  1. MAVENCLAD [Suspect]
     Active Substance: CLADRIBINE
     Indication: Multiple sclerosis
     Dosage: ROUND ONE THERAPY
     Dates: start: 202308
  2. MAVENCLAD [Suspect]
     Active Substance: CLADRIBINE
     Dosage: ROUND TWO THERAPY
     Dates: start: 202309

REACTIONS (1)
  - Muscle tension dysphonia [Unknown]
